FAERS Safety Report 18634394 (Version 1)
Quarter: 2020Q4

REPORT INFORMATION
  Report Type: Spontaneous
  Country: LB (occurrence: LB)
  Receive Date: 20201218
  Receipt Date: 20201218
  Transmission Date: 20210114
  Serious: Yes (Other)
  Sender: FDA-Public Use
  Company Number: LB-PFIZER INC-2020490418

PATIENT
  Age: 52 Year
  Sex: Female

DRUGS (2)
  1. METHYLPREDNISOLONE SODIUM SUCCINATE. [Suspect]
     Active Substance: METHYLPREDNISOLONE SODIUM SUCCINATE
     Indication: ENDOCRINE OPHTHALMOPATHY
     Dosage: 0.5 MG/KG, 2X/DAY
     Route: 042
  2. PREDNISONE. [Suspect]
     Active Substance: PREDNISONE
     Indication: ENDOCRINE OPHTHALMOPATHY
     Dosage: 60 MG, DAILY; FOR 2 MONTHS WITH PROGRESSIVE TAPERING OF HALF DOSE EVERY 2 WEEKS
     Route: 048

REACTIONS (2)
  - Off label use [Unknown]
  - Autoimmune thyroiditis [Unknown]
